FAERS Safety Report 9043089 (Version 1)
Quarter: 2013Q1

REPORT INFORMATION
  Report Type: Report from Study
  Country: US (occurrence: US)
  Receive Date: 20130129
  Receipt Date: 20130129
  Transmission Date: 20140127
  Serious: No
  Sender: FDA-Public Use
  Company Number: US-ABBOTT-12P-163-0889129-00

PATIENT
  Age: 36 Year
  Sex: Female

DRUGS (5)
  1. HUMIRA 40 MG/0.8 ML PEN [Suspect]
     Indication: PSORIATIC ARTHROPATHY
     Dates: start: 20111013, end: 20120103
  2. HUMIRA 40 MG/0.8 ML PEN [Suspect]
     Indication: LYMPHADENOPATHY
     Dates: start: 201202
  3. RELAFEN [Concomitant]
     Indication: PAIN
  4. BABY ASPIRIN [Concomitant]
     Indication: THROMBOSIS PROPHYLAXIS
     Dosage: DAILY
  5. ESTRADIOL [Concomitant]
     Indication: HORMONE REPLACEMENT THERAPY
     Dosage: PATCH

REACTIONS (3)
  - Lymphadenopathy [Recovering/Resolving]
  - Night sweats [Not Recovered/Not Resolved]
  - Off label use [Unknown]
